FAERS Safety Report 8961521 (Version 1)
Quarter: 2012Q4

REPORT INFORMATION
  Report Type: 
  Country: US (occurrence: US)
  Receive Date: 20121213
  Receipt Date: 20121213
  Transmission Date: 20130627
  Serious: Yes (Hospitalization)
  Sender: FDA-Public Use
  Company Number: US-BAYER-2012-128820

PATIENT
  Age: 18 Year
  Sex: Female

DRUGS (11)
  1. YAZ [Suspect]
     Indication: MENSES IRREGULAR
  2. MOTRIN [Concomitant]
  3. ROXICET [Concomitant]
  4. AMOXICILLIN [Concomitant]
  5. DIAZEPAM [Concomitant]
  6. SULFAMETHOXAZOLE W/TRIMETHOPRIM [Concomitant]
  7. ALBUTEROL [Concomitant]
  8. PERCOCET [Concomitant]
  9. ACETAMINOPHEN W/OXYCODONE [Concomitant]
  10. ACETAMINOPHEN [Concomitant]
  11. DILAUDID [Concomitant]

REACTIONS (5)
  - Pelvic venous thrombosis [None]
  - Deep vein thrombosis [None]
  - Pelvic venous thrombosis [None]
  - Pulmonary embolism [None]
  - Vena cava thrombosis [None]
